FAERS Safety Report 5638316-3 (Version None)
Quarter: 2008Q1

REPORT INFORMATION
  Report Type: 
  Country: None (occurrence: None)
  Receive Date: 20080226
  Receipt Date: 20080214
  Transmission Date: 20080703
  Serious: Yes (Other)
  Sender: FDA-Public Use
  Company Number: US-BAYER-200810649BCC

PATIENT
  Age: 54 Year
  Sex: Female
  Weight: 91 kg

DRUGS (1)
  1. ALKA SELTZER (FORMULATION UNKNOWN) [Suspect]
     Indication: STOMACH DISCOMFORT
     Route: 048

REACTIONS (2)
  - NON-HODGKIN'S LYMPHOMA [None]
  - RASH MACULAR [None]
